FAERS Safety Report 6867007-6 (Version None)
Quarter: 2010Q3

REPORT INFORMATION
  Report Type: 
  Country: None (occurrence: None)
  Receive Date: 20100722
  Receipt Date: 20100714
  Transmission Date: 20110219
  Serious: Yes (Hospitalization)
  Sender: FDA-Public Use
  Company Number: AR-ROCHE-715455

PATIENT
  Sex: Female

DRUGS (2)
  1. CAPECITABINE [Suspect]
     Indication: COLON CANCER
     Dosage: FREQUENCY REPORTED AS DAILY.
     Route: 048
     Dates: start: 20100410, end: 20100417
  2. OXALIPLATINO [Concomitant]
     Indication: COLON CANCER

REACTIONS (3)
  - HEADACHE [None]
  - LIVER DISORDER [None]
  - VOMITING [None]
